FAERS Safety Report 10221320 (Version 1)
Quarter: 2014Q2

REPORT INFORMATION
  Report Type: Spontaneous
  Country: US (occurrence: None)
  Receive Date: 20140604
  Receipt Date: 20140604
  Transmission Date: 20141212
  Serious: Yes (Death)
  Sender: FDA-Public Use
  Company Number: ADR-2014-00926

PATIENT
  Age: 62 Year
  Sex: Female

DRUGS (2)
  1. BACLOFEN 100MCG/ML [Suspect]
     Dosage: 55.69MCG/DAY
  2. DILAUDID (INTRATHECAL) 40MG/ML [Suspect]
     Dosage: 22.2MG/DAY

REACTIONS (1)
  - Death [None]
